FAERS Safety Report 4627994-3 (Version None)
Quarter: 2005Q2

REPORT INFORMATION
  Report Type: 
  Country: None (occurrence: None)
  Receive Date: 20050401
  Receipt Date: 20050207
  Transmission Date: 20051028
  Serious: Yes (Death)
  Sender: FDA-Public Use
  Company Number: 2005S1000440

PATIENT
  Age: 52 Year
  Sex: Male

DRUGS (10)
  1. CLOZAPINE [Suspect]
     Dosage: SEE IMAGE, PO
     Route: 048
     Dates: start: 20040524
  2. CELECOXIB [Concomitant]
  3. ACETYL SALICYLIC ACID USP BAT [Concomitant]
  4. ATENOLOL [Concomitant]
  5. ATORVASTATIN CALCIUM [Concomitant]
  6. TAMSULOSIN [Concomitant]
  7. HYDROCHLORIDE [Concomitant]
  8. TRIAMTERENE AND HYDROCHLOROTHIAZIDE [Concomitant]
  9. VALSARTAN [Concomitant]
  10. VALPROATE SODIUM [Concomitant]

REACTIONS (1)
  - DEATH [None]
